FAERS Safety Report 13367802 (Version 2)
Quarter: 2017Q2

REPORT INFORMATION
  Report Type: Spontaneous
  Country: GB (occurrence: GB)
  Receive Date: 20170324
  Receipt Date: 20170403
  Transmission Date: 20170830
  Serious: Yes (Other)
  Sender: FDA-Public Use
  Company Number: GB-ACCORD-049294

PATIENT
  Age: 70 Year
  Sex: Female
  Weight: 63 kg

DRUGS (8)
  1. LANSOPRAZOLE. [Concomitant]
     Active Substance: LANSOPRAZOLE
     Dosage: 1 DF, 1X/DAY AT LEAST FOUR HOURS APART
     Dates: start: 20160729, end: 20170222
  2. LEVOTHYROXINE. [Concomitant]
     Active Substance: LEVOTHYROXINE
     Dosage: AS DIRECTED
     Dates: start: 20160729
  3. CARBOMER 980 [Concomitant]
     Active Substance: CARBOMER HOMOPOLYMER TYPE C (ALLYL PENTAERYTHRITOL CROSSLINKED)
     Dates: start: 20160729
  4. SIMVASTATIN. [Concomitant]
     Active Substance: SIMVASTATIN
     Dosage: 1 DF, 1X/DAY NOCTE
     Dates: start: 20160729
  5. ACICLOVIR [Concomitant]
     Active Substance: ACYCLOVIR
     Dosage: 1 DF, 2X/DAY
     Dates: start: 20160729
  6. AMLODIPINE [Suspect]
     Active Substance: AMLODIPINE BESYLATE
     Indication: PRODUCT USED FOR UNKNOWN INDICATION
     Dosage: UNK
     Dates: start: 20160729
  7. RAMIPRIL. [Concomitant]
     Active Substance: RAMIPRIL
     Dosage: 1 DF, 1X/DAY EACH MORNING
     Dates: start: 20160729, end: 20170222
  8. CANDESARTAN. [Concomitant]
     Active Substance: CANDESARTAN
     Dosage: 1 DF, 1X/DAY
     Dates: start: 20170224

REACTIONS (4)
  - Rash [Unknown]
  - Burning sensation [Unknown]
  - Pain in extremity [Recovered/Resolved]
  - Pruritus [Recovered/Resolved]

NARRATIVE: CASE EVENT DATE: 20170227
